FAERS Safety Report 4839036-5 (Version None)
Quarter: 2005Q4

REPORT INFORMATION
  Report Type: 
  Country: None (occurrence: None)
  Receive Date: 20051031
  Receipt Date: 20050810
  Transmission Date: 20060501
  Serious: No
  Sender: FDA-Public Use
  Company Number: 200516440US

PATIENT
  Sex: Female

DRUGS (1)
  1. KETEK [Suspect]
     Dates: start: 20050717, end: 20050721

REACTIONS (5)
  - DRY MOUTH [None]
  - DYSGEUSIA [None]
  - MOUTH PLAQUE [None]
  - SKIN ODOUR ABNORMAL [None]
  - STOMACH DISCOMFORT [None]
